FAERS Safety Report 10286474 (Version 2)
Quarter: 2014Q3

REPORT INFORMATION
  Report Type: Report from Study
  Country: DE (occurrence: DE)
  Receive Date: 20140709
  Receipt Date: 20140709
  Transmission Date: 20150326
  Serious: Yes (Death, Hospitalization, Other)
  Sender: FDA-Public Use
  Company Number: DE-SA-THYM-1002025

PATIENT
  Age: 66 Year
  Sex: Male

DRUGS (11)
  1. ANTI-THYMOCYTE GLOBULIN (RABBIT) [Suspect]
     Active Substance: LAPINE T-LYMPHOCYTE IMMUNE GLOBULIN
     Indication: PROPHYLAXIS AGAINST TRANSPLANT REJECTION
     Dosage: UNK
     Route: 042
     Dates: start: 20100519
  2. ACTRAPID [Concomitant]
     Active Substance: INSULIN HUMAN
  3. PROGRAF [Concomitant]
     Active Substance: TACROLIMUS\TACROLIMUS ANHYDROUS
  4. RAMIPRIL. [Concomitant]
     Active Substance: RAMIPRIL
  5. HUMAN PROTAPHANE [Concomitant]
  6. MYCOPHENOLATE MOFETIL. [Suspect]
     Active Substance: MYCOPHENOLATE MOFETIL
     Indication: PROPHYLAXIS AGAINST TRANSPLANT REJECTION
     Dosage: UNK
     Route: 048
     Dates: start: 20100520
  7. TACROLIMUS. [Suspect]
     Active Substance: TACROLIMUS
     Indication: PROPHYLAXIS AGAINST TRANSPLANT REJECTION
     Route: 048
     Dates: start: 20100520
  8. AMLODIPINE [Concomitant]
     Active Substance: AMLODIPINE BESYLATE
  9. PREDNISOLONE. [Suspect]
     Active Substance: PREDNISOLONE
     Indication: PROPHYLAXIS AGAINST TRANSPLANT REJECTION
     Dosage: UNK
     Route: 048
     Dates: start: 20100519
  10. PRAVASTATIN [Concomitant]
     Active Substance: PRAVASTATIN\PRAVASTATIN SODIUM
  11. METOPROLOL [Concomitant]
     Active Substance: METOPROLOL

REACTIONS (8)
  - Multi-organ failure [Fatal]
  - Pulmonary oedema [Unknown]
  - Kidney transplant rejection [Unknown]
  - Brain injury [Unknown]
  - Cardiac arrest [Fatal]
  - Angina pectoris [Unknown]
  - Cellulitis [Recovered/Resolved]
  - Staphylococcus test positive [Unknown]

NARRATIVE: CASE EVENT DATE: 20100520
